FAERS Safety Report 14999545 (Version 3)
Quarter: 2018Q3

REPORT INFORMATION
  Report Type: Spontaneous
  Country: DE (occurrence: DE)
  Receive Date: 20180612
  Receipt Date: 20180804
  Transmission Date: 20181010
  Serious: Yes (Death, Life-Threatening, Hospitalization)
  Sender: FDA-Public Use
  Company Number: DE-SUN PHARMACEUTICAL INDUSTRIES LTD-2018RR-175502

PATIENT
  Age: 73 Year
  Sex: Female
  Weight: 60 kg

DRUGS (35)
  1. DIGOXIN. [Suspect]
     Active Substance: DIGOXIN
     Indication: CORONARY ARTERY DISEASE
     Dosage: 0.2 MG, DAILY
     Route: 048
     Dates: start: 20010703, end: 20010714
  2. TRANXENE [Suspect]
     Active Substance: CLORAZEPATE DIPOTASSIUM
     Indication: RESTLESSNESS
     Dosage: 10 MG, DAILY
     Route: 048
     Dates: start: 20010710, end: 20010714
  3. CARBIMAZOLE [Concomitant]
     Active Substance: CARBIMAZOLE
     Indication: HYPERTHYROIDISM
     Dosage: 20 MG, DAILY
     Route: 048
     Dates: start: 20010621, end: 20010714
  4. PANTOPRAZOLE [Concomitant]
     Active Substance: PANTOPRAZOLE
     Indication: PROPHYLAXIS
     Dosage: 40 MG, DAILY
     Route: 048
     Dates: end: 20010614
  5. DALTEPARIN SODIUM [Suspect]
     Active Substance: DALTEPARIN SODIUM
     Indication: THROMBOSIS PROPHYLAXIS
     Dosage: 2500 IU, DAILY
     Route: 058
     Dates: start: 20010703, end: 20010714
  6. MELPERONE HYDROCHLORIDE [Suspect]
     Active Substance: MELPERONE HYDROCHLORIDE
     Indication: RESTLESSNESS
     Dosage: 16 ML, DAILY
     Route: 048
     Dates: start: 20010706, end: 20010712
  7. INSULIN GLARGINE [Concomitant]
     Active Substance: INSULIN GLARGINE
     Indication: DIABETES MELLITUS
     Dosage: 16 IU, DAILY
     Route: 058
     Dates: end: 20010629
  8. POTASSIUM CHLORIDE. [Concomitant]
     Active Substance: POTASSIUM CHLORIDE
     Indication: ELECTROLYTE IMBALANCE
     Dosage: DOSE STATED AS 2. NO UNITS PROVIDED
     Route: 048
     Dates: start: 20010703, end: 20010714
  9. METOLAZONE TABLET [Suspect]
     Active Substance: METOLAZONE
     Indication: HYPERTENSION
     Dosage: REPORTED AS 1 DOSE FORM
     Route: 048
     Dates: start: 20010712, end: 20010713
  10. DECORTIN [Suspect]
     Active Substance: PREDNISONE
     Indication: DYSPNOEA
     Dosage: 50 MG, DAILY
     Route: 042
     Dates: start: 20010703, end: 20010703
  11. PARACETAMOL [Suspect]
     Active Substance: ACETAMINOPHEN
     Indication: PAIN
     Dosage: 500 MG, DAILY
     Route: 048
     Dates: start: 20010711, end: 20010711
  12. CIPROFLOXACIN. [Suspect]
     Active Substance: CIPROFLOXACIN
     Indication: CHOLECYSTITIS
     Dosage: 500 MG, DAILY, TABLET
     Route: 048
     Dates: start: 20010620, end: 20010628
  13. METOCLOPRAMIDE. [Suspect]
     Active Substance: METOCLOPRAMIDE
     Indication: NAUSEA
     Dosage: 75 GTT, DAILY
     Route: 048
     Dates: start: 20010704, end: 20010712
  14. AMLODIPINE [Suspect]
     Active Substance: AMLODIPINE BESYLATE
     Indication: CORONARY ARTERY DISEASE
     Dosage: 5 MG, QD
     Route: 048
     Dates: start: 20010703, end: 20010714
  15. BISOPROLOL FUMARATE. [Concomitant]
     Active Substance: BISOPROLOL FUMARATE
     Indication: CORONARY ARTERY DISEASE
     Dosage: 5 MG, DAILY
     Route: 048
     Dates: end: 20010714
  16. RAMIPRIL. [Concomitant]
     Active Substance: RAMIPRIL
     Indication: CORONARY ARTERY DISEASE
     Dosage: 5 MG, DAILY
     Route: 048
     Dates: end: 20010714
  17. HALDOL [Suspect]
     Active Substance: HALOPERIDOL
     Indication: PRODUCT USED FOR UNKNOWN INDICATION
     Dosage: 3 GTT, DAILY
     Route: 048
     Dates: start: 20010713, end: 20010714
  18. ASPIRIN TABLET [Suspect]
     Active Substance: ASPIRIN
     Indication: CORONARY ARTERY DISEASE
     Dosage: 100 MG, DAILY
     Route: 048
     Dates: end: 20010714
  19. DIAZEPAM. [Suspect]
     Active Substance: DIAZEPAM
     Indication: RESTLESSNESS
     Dosage: UNK
     Route: 048
     Dates: end: 20010703
  20. AMPHOTERICIN B. [Suspect]
     Active Substance: AMPHOTERICIN B
     Indication: PROPHYLAXIS
     Dosage: DOSE FORM STATED AS PIPETTES
     Route: 048
     Dates: start: 20010703, end: 20010714
  21. PERENTEROL [Suspect]
     Active Substance: SACCHAROMYCES CEREVISIAE
     Indication: DIARRHOEA
     Dosage: DOSE STATED AS 2. NO UNITS PROVIDED
     Route: 048
     Dates: start: 20010711
  22. PREDNISOLONE SODIUM SUCCINATE [Suspect]
     Active Substance: PREDNISOLONE SODIUM SUCCINATE
     Indication: DYSPNOEA
     Dosage: 50 MG, DAILY
     Route: 042
     Dates: start: 20010703, end: 20010703
  23. FUROSEMIDE. [Suspect]
     Active Substance: FUROSEMIDE
     Indication: HYPERTENSION
     Dosage: 80 MG, DAILY
     Route: 042
     Dates: start: 20010703, end: 20010714
  24. CEFTRIAXONE SODIUM. [Suspect]
     Active Substance: CEFTRIAXONE SODIUM
     Indication: PYREXIA
     Dosage: 2 G, DAILY
     Route: 042
     Dates: start: 20010629, end: 20010703
  25. PLAVIX [Suspect]
     Active Substance: CLOPIDOGREL BISULFATE
     Indication: CORONARY ARTERY DISEASE
     Dosage: UNK
     Route: 048
     Dates: start: 20010704, end: 20010714
  26. CAPTOPRIL TABLET [Concomitant]
     Active Substance: CAPTOPRIL
     Indication: CORONARY ARTERY DISEASE
     Dosage: DOSE REPORTED AS 1 DF DAILY
     Route: 048
     Dates: start: 20010714
  27. METFORMIN HYDROCHLORIDE. [Concomitant]
     Active Substance: METFORMIN HYDROCHLORIDE
     Indication: DIABETES MELLITUS
     Dosage: 250 MG, DAILY
     Route: 048
     Dates: end: 20010714
  28. SODIUM PERCHLORATE [Concomitant]
     Active Substance: SODIUM PERCHLORATE
     Indication: HYPERTHYROIDISM
     Dosage: 60 GTT, DAILY
     Route: 048
     Dates: start: 20010618, end: 20010714
  29. BROMAZEPAM [Concomitant]
     Active Substance: BROMAZEPAM
     Indication: RESTLESSNESS
     Dosage: BROMAZEPAM: DOSE STATED AS 1/4. NO UNITS PROVIDED
     Route: 048
     Dates: start: 20010713, end: 20010714
  30. MOLSIDOMINE [Suspect]
     Active Substance: MOLSIDOMINE
     Indication: CORONARY ARTERY DISEASE
     Dosage: UNK
     Route: 048
     Dates: start: 20010703, end: 20010714
  31. ATORVASTATIN CALCIUM. [Concomitant]
     Active Substance: ATORVASTATIN CALCIUM
     Indication: HYPERLIPIDAEMIA
     Dosage: 20 MG, DAILY
     Route: 048
     Dates: end: 20010703
  32. NOVODIGAL (.BETA.?ACETYLDIGOXIN) [Suspect]
     Active Substance: .BETA.-ACETYLDIGOXIN
     Indication: CORONARY ARTERY DISEASE
     Dosage: DOSE REPORTED AS 1 DOSE FORM
     Route: 048
     Dates: start: 20010703
  33. ISOSORBIDE MONONITRATE. [Suspect]
     Active Substance: ISOSORBIDE MONONITRATE
     Indication: CORONARY ARTERY DISEASE
     Dosage: UNKNOWN
     Route: 048
     Dates: start: 20010703, end: 20010714
  34. METOCLOPRAMIDE. [Suspect]
     Active Substance: METOCLOPRAMIDE
     Dosage: 25 UNK, UNK
  35. GLIMEPIRIDE. [Concomitant]
     Active Substance: GLIMEPIRIDE
     Indication: DIABETES MELLITUS
     Dosage: 3 MG, DAILY
     Route: 048
     Dates: end: 20010703

REACTIONS (6)
  - Dermatitis exfoliative [Fatal]
  - Respiratory disorder [Fatal]
  - Multiple organ dysfunction syndrome [Fatal]
  - Erythema [Fatal]
  - Blister [Fatal]
  - Toxic epidermal necrolysis [Fatal]

NARRATIVE: CASE EVENT DATE: 200107
